FAERS Safety Report 16218309 (Version 3)
Quarter: 2019Q3

REPORT INFORMATION
  Report Type: Spontaneous
  Country: US (occurrence: US)
  Receive Date: 20190419
  Receipt Date: 20190701
  Transmission Date: 20191004
  Serious: Yes (Disabling)
  Sender: FDA-Public Use
  Company Number: US-TEVA-2019-US-1039547

PATIENT
  Sex: Male

DRUGS (1)
  1. ATAZANAVIR. [Suspect]
     Active Substance: ATAZANAVIR
     Route: 064

REACTIONS (5)
  - Gait disturbance [Unknown]
  - Dyslexia [Not Recovered/Not Resolved]
  - Amnesia [Unknown]
  - Learning disability [Not Recovered/Not Resolved]
  - Foetal exposure during pregnancy [Unknown]
